FAERS Safety Report 10883930 (Version 2)
Quarter: 2015Q3

REPORT INFORMATION
  Report Type: Spontaneous
  Country: US (occurrence: US)
  Receive Date: 20150304
  Receipt Date: 20150716
  Transmission Date: 20151125
  Serious: No
  Sender: FDA-Public Use
  Company Number: US-AMGEN-USASL2015018784

PATIENT
  Age: 56 Year
  Sex: Female

DRUGS (1)
  1. ENBREL [Suspect]
     Active Substance: ETANERCEPT
     Indication: RHEUMATOID ARTHRITIS
     Dosage: 50 MG, QWK
     Route: 058
     Dates: start: 201502

REACTIONS (4)
  - Abdominal discomfort [Unknown]
  - Injection site erythema [Unknown]
  - Injection site reaction [Not Recovered/Not Resolved]
  - Gastrooesophageal reflux disease [Unknown]

NARRATIVE: CASE EVENT DATE: 2015
